FAERS Safety Report 20448070 (Version 2)
Quarter: 2022Q2

REPORT INFORMATION
  Report Type: Spontaneous
  Country: US (occurrence: US)
  Receive Date: 20220209
  Receipt Date: 20220630
  Transmission Date: 20220721
  Serious: No
  Sender: FDA-Public Use
  Company Number: US-ELI_LILLY_AND_COMPANY-US202201008411

PATIENT
  Sex: Male

DRUGS (1)
  1. TRULICITY [Suspect]
     Active Substance: DULAGLUTIDE
     Indication: Blood glucose
     Dosage: 3 MG, WEEKLY (1/W)
     Route: 058
     Dates: start: 20220202

REACTIONS (3)
  - Hypoacusis [Unknown]
  - Inappropriate schedule of product administration [Unknown]
  - Overdose [Unknown]
